FAERS Safety Report 7130710-7 (Version None)
Quarter: 2010Q4

REPORT INFORMATION
  Report Type: 
  Country: None (occurrence: None)
  Receive Date: 20101201
  Receipt Date: 20101122
  Transmission Date: 20110411
  Serious: Yes (Death, Hospitalization)
  Sender: FDA-Public Use
  Company Number: JP-ROCHE-523596

PATIENT
  Age: 81 Year
  Sex: Male

DRUGS (4)
  1. TICLOPIDINE HCL [Suspect]
     Indication: CAROTID ARTERY STENT INSERTION
     Route: 065
     Dates: start: 20030101, end: 20070516
  2. ASPIRIN [Concomitant]
     Indication: CAROTID ARTERY STENT INSERTION
     Route: 065
  3. UNKNOWN HYPERTENSION DRUG [Concomitant]
  4. UNSPECIFIED OTHER MEDICATION [Concomitant]
     Dosage: TOTAL OF 9 DRUGS INCLUDING ANTIHYPERTENSIVE DRUGS NOS WERE ALL WITHDRAWN

REACTIONS (4)
  - ANAEMIA [None]
  - LUPUS-LIKE SYNDROME [None]
  - PNEUMONIA [None]
  - SEPSIS [None]
